FAERS Safety Report 11024004 (Version 2)
Quarter: 2015Q2

REPORT INFORMATION
  Report Type: Spontaneous
  Country: US (occurrence: US)
  Receive Date: 20150413
  Receipt Date: 20150525
  Transmission Date: 20150821
  Serious: No
  Sender: FDA-Public Use
  Company Number: US-JNJFOC-20130309414

PATIENT
  Sex: Female

DRUGS (2)
  1. LEVAQUIN [Suspect]
     Active Substance: LEVOFLOXACIN
     Indication: PNEUMONITIS
     Route: 048
     Dates: start: 20130227, end: 20130228
  2. BENFOTIAMINE [Concomitant]
     Active Substance: BENFOTIAMINE

REACTIONS (4)
  - Dizziness [Recovered/Resolved]
  - Drug effect decreased [Unknown]
  - Respiratory tract congestion [Unknown]
  - Cough [Unknown]
